FAERS Safety Report 20578748 (Version 1)
Quarter: 2022Q1

REPORT INFORMATION
  Report Type: Spontaneous
  Country: US (occurrence: US)
  Receive Date: 20220310
  Receipt Date: 20220310
  Transmission Date: 20220423
  Serious: No
  Sender: FDA-Public Use
  Company Number: US-TRIS PHARMA, INC.-22US010101

PATIENT

DRUGS (6)
  1. CODEINE PHOSPHATE\PROMETHAZINE HYDROCHLORIDE [Suspect]
     Active Substance: CODEINE PHOSPHATE\PROMETHAZINE HYDROCHLORIDE
     Indication: Cough
     Dosage: 6.25 MILLIGRAM
     Route: 048
     Dates: start: 202202
  2. CODEINE PHOSPHATE\PROMETHAZINE HYDROCHLORIDE [Suspect]
     Active Substance: CODEINE PHOSPHATE\PROMETHAZINE HYDROCHLORIDE
     Dosage: 6.25 MILLIGRAM
     Route: 048
     Dates: start: 202202, end: 202202
  3. CODEINE PHOSPHATE\PROMETHAZINE HYDROCHLORIDE [Suspect]
     Active Substance: CODEINE PHOSPHATE\PROMETHAZINE HYDROCHLORIDE
     Dosage: 6.25 MILLIGRAM
     Route: 048
  4. PREDNISONE [Concomitant]
     Active Substance: PREDNISONE
     Indication: Infection
     Dosage: 4 MILLIGRAM
  5. AMOXICILLIN [Concomitant]
     Active Substance: AMOXICILLIN
     Indication: Infection
     Dosage: UNK
  6. LEVOXINE [LEVOFLOXACIN HEMIHYDRATE] [Concomitant]
     Indication: Infection
     Dosage: UNK

REACTIONS (2)
  - Therapeutic product effect decreased [Not Recovered/Not Resolved]
  - Cough [Not Recovered/Not Resolved]

NARRATIVE: CASE EVENT DATE: 20220201
